FAERS Safety Report 9854692 (Version 2)
Quarter: 2014Q2

REPORT INFORMATION
  Report Type: Report from Study
  Country: US (occurrence: US)
  Receive Date: 20140130
  Receipt Date: 20140411
  Transmission Date: 20141212
  Serious: Yes (Other)
  Sender: FDA-Public Use
  Company Number: US-ROCHE-1336983

PATIENT
  Age: 67 Year
  Sex: Female
  Weight: 73.55 kg

DRUGS (7)
  1. ZELBORAF [Suspect]
     Indication: METASTATIC MALIGNANT MELANOMA
     Route: 048
     Dates: start: 201303, end: 201309
  2. ZELBORAF [Suspect]
     Dosage: START DATE: NOV - DEC 2013
     Route: 048
  3. ADVAIR [Concomitant]
  4. PHENYTOIN [Concomitant]
     Indication: CONVULSION
     Route: 048
  5. ALENDRONATE [Concomitant]
     Indication: OSTEOPOROSIS
     Route: 048
  6. PHENOBARBITAL [Concomitant]
     Indication: CONVULSION
     Route: 048
  7. ATORVASTATIN [Concomitant]
     Indication: BLOOD CHOLESTEROL
     Route: 048

REACTIONS (5)
  - Metastases to small intestine [Unknown]
  - Weight increased [Unknown]
  - Somnolence [Not Recovered/Not Resolved]
  - Sunburn [Recovered/Resolved]
  - Skin papilloma [Recovered/Resolved]
